FAERS Safety Report 15502058 (Version 2)
Quarter: 2018Q4

REPORT INFORMATION
  Report Type: Spontaneous
  Country: US (occurrence: US)
  Receive Date: 20181015
  Receipt Date: 20181122
  Transmission Date: 20190205
  Serious: Yes (Hospitalization, Other)
  Sender: FDA-Public Use
  Company Number: US-AMGEN-USASP2018128409

PATIENT
  Age: 32 Year
  Sex: Female

DRUGS (7)
  1. CORLANOR [Suspect]
     Active Substance: IVABRADINE HYDROCHLORIDE
     Indication: SINUS TACHYCARDIA
     Dosage: 2.5 MG, QD
     Route: 065
     Dates: start: 201712
  2. CARDIZEM [Concomitant]
     Active Substance: DILTIAZEM HYDROCHLORIDE
     Dosage: UNK
  3. LEVAQUIN [Concomitant]
     Active Substance: LEVOFLOXACIN
     Dosage: UNK
  4. CORLANOR [Suspect]
     Active Substance: IVABRADINE HYDROCHLORIDE
     Indication: VENTRICULAR EXTRASYSTOLES
  5. ADENOSINE. [Concomitant]
     Active Substance: ADENOSINE
     Dosage: UNK
  6. FLAGYL [Concomitant]
     Active Substance: METRONIDAZOLE\METRONIDAZOLE HYDROCHLORIDE
     Dosage: UNK
  7. AMIODARONE [Concomitant]
     Active Substance: AMIODARONE
     Dosage: UNK

REACTIONS (9)
  - Sleep disorder due to general medical condition, insomnia type [Unknown]
  - Acidosis [Unknown]
  - Clostridium difficile infection [Unknown]
  - Heart rate decreased [Unknown]
  - Dyspnoea [Unknown]
  - Off label use [Unknown]
  - Dizziness [Unknown]
  - Feeling abnormal [Unknown]
  - Nausea [Unknown]

NARRATIVE: CASE EVENT DATE: 201712
